FAERS Safety Report 8046234-9 (Version None)
Quarter: 2012Q1

REPORT INFORMATION
  Report Type: 
  Country: None (occurrence: None)
  Receive Date: 20120113
  Receipt Date: 20120105
  Transmission Date: 20120608
  Serious: Yes (Other)
  Sender: FDA-Public Use
  Company Number: BR-PFIZER INC-2012004218

PATIENT
  Age: 61 Year
  Sex: Female

DRUGS (2)
  1. CELEBREX [Suspect]
     Indication: PRODUCT USED FOR UNKNOWN INDICATION
     Dosage: UNK
     Route: 048
     Dates: end: 19960101
  2. LYRICA [Concomitant]
     Indication: BACK PAIN
     Dosage: UNK

REACTIONS (3)
  - SPINAL CORD DISORDER [None]
  - URINARY TRACT INFECTION [None]
  - FLUID RETENTION [None]
